FAERS Safety Report 6866447-9 (Version None)
Quarter: 2010Q3

REPORT INFORMATION
  Report Type: 
  Country: None (occurrence: None)
  Receive Date: 20100722
  Receipt Date: 20100714
  Transmission Date: 20110219
  Serious: Yes (Other)
  Sender: FDA-Public Use
  Company Number: US-JNJCH-2010016721

PATIENT
  Age: 8 Year
  Sex: Female
  Weight: 30.8 kg

DRUGS (3)
  1. CHILDREN'S ZYRTEC ALLERGY [Suspect]
     Indication: HYPERSENSITIVITY
     Dosage: TEXT:ONE TABLET DAILY
     Route: 048
     Dates: start: 20100401, end: 20100607
  2. NASACORT [Concomitant]
     Indication: HYPERSENSITIVITY
     Dosage: TEXT:ONE SPRAY EACH NOSTRIL
     Route: 045
  3. ALLERGY MEDICATION [Concomitant]
     Indication: HYPERSENSITIVITY
     Dosage: TEXT:ONE DROP EACH EYE
     Route: 047

REACTIONS (2)
  - ABDOMINAL DISCOMFORT [None]
  - HEPATITIS [None]
